FAERS Safety Report 9756790 (Version 2)
Quarter: 2014Q1

REPORT INFORMATION
  Report Type: Spontaneous
  Country: US (occurrence: US)
  Receive Date: 20131213
  Receipt Date: 20140221
  Transmission Date: 20141002
  Serious: No
  Sender: FDA-Public Use
  Company Number: US-009507513-1312USA006291

PATIENT
  Age: 55 Year
  Sex: Female
  Weight: 90.7 kg

DRUGS (3)
  1. OXYTROL FOR WOMEN [Suspect]
     Indication: BLADDER OPERATION
     Dosage: 1 DF, Q4D
     Route: 062
     Dates: start: 20131012, end: 20131111
  2. ASPIRIN [Concomitant]
     Indication: PAIN
     Dosage: UNK, UNKNOWN
  3. TYLENOL [Concomitant]
     Indication: PAIN
     Dosage: UNK, UNKNOWN

REACTIONS (3)
  - Pollakiuria [Recovered/Resolved]
  - Incorrect drug administration duration [Unknown]
  - Drug ineffective [Unknown]
